FAERS Safety Report 13142111 (Version 2)
Quarter: 2017Q2

REPORT INFORMATION
  Report Type: Spontaneous
  Country: ES (occurrence: ES)
  Receive Date: 20170123
  Receipt Date: 20170524
  Transmission Date: 20170830
  Serious: Yes (Death, Hospitalization, Other)
  Sender: FDA-Public Use
  Company Number: ES-GILEAD-2017-0254372

PATIENT
  Age: 54 Year
  Sex: Female

DRUGS (2)
  1. ZYDELIG [Suspect]
     Active Substance: IDELALISIB
     Indication: CHRONIC LYMPHOCYTIC LEUKAEMIA
     Dosage: 100 MG, BID
     Route: 048
     Dates: start: 20160802, end: 201701
  2. RITUXIMAB [Concomitant]
     Active Substance: RITUXIMAB
     Dosage: X 7
     Route: 065
     Dates: start: 201608

REACTIONS (2)
  - Disseminated tuberculosis [Fatal]
  - Hyponatraemia [Unknown]
